FAERS Safety Report 5032409-X (Version None)
Quarter: 2006Q2

REPORT INFORMATION
  Report Type: 
  Country: None (occurrence: None)
  Receive Date: 20060621
  Receipt Date: 20060621
  Transmission Date: 20061013
  Serious: Yes (Life-Threatening, Hospitalization)
  Sender: FDA-Public Use
  Company Number: None

PATIENT
  Age: 57 Year
  Sex: Male
  Weight: 113.5 kg

DRUGS (4)
  1. ETANERCEPT   25 MG     AMGEN [Suspect]
     Indication: MYELODYSPLASTIC SYNDROME
     Dosage: 25 MG   TWICE WK FOR 2 WKS     SQ
     Route: 058
     Dates: start: 20060609, end: 20060609
  2. ETANERCEPT   25 MG     AMGEN [Suspect]
     Indication: MYELODYSPLASTIC SYNDROME
     Dosage: 25 MG   TWICE WK FOR 2 WKS     SQ
     Route: 058
     Dates: start: 20060612, end: 20060612
  3. ATGAM [Concomitant]
  4. ANTITHYMOCYTE GLOBULIN [Concomitant]

REACTIONS (4)
  - BACTERIAL INFECTION [None]
  - BLOOD CULTURE POSITIVE [None]
  - PYREXIA [None]
  - SERUM SICKNESS [None]
